FAERS Safety Report 15334517 (Version 1)
Quarter: 2018Q3

REPORT INFORMATION
  Report Type: Spontaneous
  Country: NO (occurrence: NO)
  Receive Date: 20180830
  Receipt Date: 20180830
  Transmission Date: 20181010
  Serious: Yes (Other)
  Sender: FDA-Public Use
  Company Number: NO-PFIZER INC-2018345603

PATIENT
  Sex: Male

DRUGS (1)
  1. XELJANZ [Suspect]
     Active Substance: TOFACITINIB CITRATE
     Indication: ARTHRITIS
     Dosage: 5 MG, 2X/DAY
     Dates: start: 20180720, end: 201808

REACTIONS (4)
  - White blood cell count increased [Unknown]
  - Rectal haemorrhage [Recovered/Resolved]
  - Gingival bleeding [Unknown]
  - Mouth ulceration [Unknown]

NARRATIVE: CASE EVENT DATE: 201808
